FAERS Safety Report 12781962 (Version 2)
Quarter: 2017Q4

REPORT INFORMATION
  Report Type: Spontaneous
  Country: US (occurrence: US)
  Receive Date: 20160927
  Receipt Date: 20171002
  Transmission Date: 20180320
  Serious: Yes (Other)
  Sender: FDA-Public Use
  Company Number: US-AMGEN-USASP2016129077

PATIENT
  Age: 62 Year
  Sex: Male

DRUGS (5)
  1. NEUPOGEN [Suspect]
     Active Substance: FILGRASTIM
     Dosage: 480 MUG, UNK
     Route: 065
     Dates: start: 201609
  2. NEUPOGEN [Suspect]
     Active Substance: FILGRASTIM
     Dosage: 300 MUG, QD
     Route: 065
     Dates: start: 2016
  3. NEUPOGEN [Suspect]
     Active Substance: FILGRASTIM
     Indication: AUTOIMMUNE NEUTROPENIA
     Dosage: UNK
     Route: 065
     Dates: start: 2014
  4. NEUPOGEN [Suspect]
     Active Substance: FILGRASTIM
     Dosage: 480 MUG, 2 TIMES/WK
     Route: 065
     Dates: start: 2016
  5. NEUPOGEN [Suspect]
     Active Substance: FILGRASTIM
     Dosage: 960 MUG, 2 TIMES/WK (TWICE A WEEK)
     Route: 065
     Dates: start: 2016

REACTIONS (9)
  - Neutropenia [Unknown]
  - Incorrect dose administered [Unknown]
  - Drug ineffective [Unknown]
  - Stomatitis [Unknown]
  - Fatigue [Unknown]
  - Bone pain [Unknown]
  - Pyrexia [Unknown]
  - Myalgia [Unknown]
  - Product storage error [Unknown]

NARRATIVE: CASE EVENT DATE: 2014
